FAERS Safety Report 25652009 (Version 1)
Quarter: 2025Q3

REPORT INFORMATION
  Report Type: Spontaneous
  Country: US (occurrence: US)
  Receive Date: 20250806
  Receipt Date: 20250806
  Transmission Date: 20251021
  Serious: Yes (Other)
  Sender: BIOGEN
  Company Number: US-BIOGEN-2025BI01319408

PATIENT
  Sex: Female

DRUGS (1)
  1. VUMERITY [Suspect]
     Active Substance: DIROXIMEL FUMARATE
     Indication: Multiple sclerosis
     Route: 050
     Dates: end: 20250526

REACTIONS (6)
  - Cardiac failure congestive [Unknown]
  - Hypertension [Unknown]
  - Heart rate decreased [Unknown]
  - Mental impairment [Unknown]
  - Gait disturbance [Unknown]
  - Weight increased [Unknown]
